FAERS Safety Report 12853214 (Version 1)
Quarter: 2016Q4

REPORT INFORMATION
  Report Type: Spontaneous
  Country: US (occurrence: US)
  Receive Date: 20161017
  Receipt Date: 20161017
  Transmission Date: 20170207
  Serious: Yes (Other)
  Sender: FDA-Public Use
  Company Number: US-RECKITT BENCKISER HEALTHCARE INT LIMITED-RB-91515-2016

PATIENT
  Age: 70 Year
  Sex: Female

DRUGS (1)
  1. DELSYM [Suspect]
     Active Substance: DEXTROMETHORPHAN
     Indication: PRODUCT USED FOR UNKNOWN INDICATION
     Dosage: TOOK FIRST DOSE AT 3AM AND THEN TOOK 2 MORE DOSES TOTALLING 30ML ON SAME DAY
     Route: 048
     Dates: start: 20161012

REACTIONS (4)
  - Nervousness [Not Recovered/Not Resolved]
  - Dizziness [Unknown]
  - Inappropriate schedule of drug administration [Unknown]
  - Stress [Not Recovered/Not Resolved]

NARRATIVE: CASE EVENT DATE: 20161012
